FAERS Safety Report 8829383 (Version 7)
Quarter: 2016Q3

REPORT INFORMATION
  Report Type: Report from Study
  Country: BR (occurrence: BR)
  Receive Date: 20121008
  Receipt Date: 20160819
  Transmission Date: 20161109
  Serious: Yes (Hospitalization, Other)
  Sender: FDA-Public Use
  Company Number: BR-ROCHE-729322

PATIENT
  Age: 52 Year
  Sex: Female
  Weight: 84 kg

DRUGS (35)
  1. MABTHERA [Suspect]
     Active Substance: RITUXIMAB
     Indication: RHEUMATOID ARTHRITIS
     Dosage: DOSE: 500MG/50ML
     Route: 042
     Dates: start: 20080721, end: 200908
  2. MABTHERA [Suspect]
     Active Substance: RITUXIMAB
     Route: 042
     Dates: start: 20100611, end: 20100625
  3. MABTHERA [Suspect]
     Active Substance: RITUXIMAB
     Route: 042
     Dates: start: 20110328, end: 20110411
  4. MABTHERA [Suspect]
     Active Substance: RITUXIMAB
     Route: 042
  5. AAS [Concomitant]
     Active Substance: ASPIRIN
  6. GLIFAGE XR [Concomitant]
     Active Substance: METFORMIN HYDROCHLORIDE
     Route: 065
  7. ARADOIS [Concomitant]
     Active Substance: LOSARTAN POTASSIUM
     Route: 065
  8. CRESTOR [Concomitant]
     Active Substance: ROSUVASTATIN CALCIUM
     Route: 065
  9. ARAVA [Concomitant]
     Active Substance: LEFLUNOMIDE
  10. MABTHERA [Suspect]
     Active Substance: RITUXIMAB
     Route: 042
     Dates: start: 20130507, end: 20130521
  11. MABTHERA [Suspect]
     Active Substance: RITUXIMAB
     Route: 042
     Dates: start: 20100524, end: 20100607
  12. EUTHYROX [Concomitant]
     Active Substance: LEVOTHYROXINE SODIUM
     Indication: THYROID CANCER
     Dosage: DAILY
     Route: 065
  13. FORASEQ (BRAZIL) [Concomitant]
     Active Substance: BUDESONIDE\FORMOTEROL FUMARATE
     Dosage: 400/12 MG
     Route: 065
  14. ATORVASTATIN [Concomitant]
     Active Substance: ATORVASTATIN
     Route: 065
  15. MABTHERA [Suspect]
     Active Substance: RITUXIMAB
     Route: 042
  16. MABTHERA [Suspect]
     Active Substance: RITUXIMAB
     Dosage: LAST INFUSION ON 23/NOV/2015
     Route: 042
     Dates: start: 20100501, end: 20130522
  17. CRESTOR [Concomitant]
     Active Substance: ROSUVASTATIN CALCIUM
     Dosage: INDICATION: UNSPECIFIED TRIGLYCERIDE DISORDER
     Route: 065
  18. NAPROXEN. [Concomitant]
     Active Substance: NAPROXEN
     Route: 065
  19. EUTHYROX [Concomitant]
     Active Substance: LEVOTHYROXINE SODIUM
     Route: 065
  20. ATROPINE. [Concomitant]
     Active Substance: ATROPINE
  21. HYDROCHLOROTHIAZIDE. [Concomitant]
     Active Substance: HYDROCHLOROTHIAZIDE
     Dosage: DAILY
     Route: 065
  22. AMLODIPINE [Concomitant]
     Active Substance: AMLODIPINE BESYLATE
     Route: 065
  23. PREBICTAL [Concomitant]
     Active Substance: PREGABALIN
     Route: 065
  24. OMEPRAZOLE. [Concomitant]
     Active Substance: OMEPRAZOLE
     Route: 065
  25. TAMSULOSINA [Concomitant]
     Active Substance: TAMSULOSIN HYDROCHLORIDE
     Dosage: DAILY
     Route: 065
  26. ACETAMINOPHEN. [Concomitant]
     Active Substance: ACETAMINOPHEN
     Indication: PREMEDICATION
     Route: 065
     Dates: start: 20080721, end: 20100607
  27. LOSARTAN. [Concomitant]
     Active Substance: LOSARTAN
     Route: 065
  28. EZETROL [Concomitant]
     Active Substance: EZETIMIBE
     Route: 065
  29. SPIRONOLACTONE. [Concomitant]
     Active Substance: SPIRONOLACTONE
     Dosage: DAILY
     Route: 065
  30. MABTHERA [Suspect]
     Active Substance: RITUXIMAB
     Route: 042
  31. MABTHERA [Suspect]
     Active Substance: RITUXIMAB
     Route: 042
     Dates: start: 20120315, end: 20120329
  32. NICOTINIC ACID [Suspect]
     Active Substance: NIACIN
     Indication: BLOOD PRESSURE MEASUREMENT
     Dosage: THERAPY SUSPENDED
     Route: 065
  33. MODURETIC 5-50 [Concomitant]
     Active Substance: AMILORIDE HYDROCHLORIDE\HYDROCHLOROTHIAZIDE
     Route: 065
  34. METICORTEN [Concomitant]
     Active Substance: PREDNISONE
     Route: 065
  35. GLIFAGE [Concomitant]
     Active Substance: METFORMIN HYDROCHLORIDE
     Dosage: DAILY
     Route: 065

REACTIONS (32)
  - Urinary incontinence [Not Recovered/Not Resolved]
  - Back pain [Not Recovered/Not Resolved]
  - Sensory disturbance [Recovering/Resolving]
  - Fatigue [Not Recovered/Not Resolved]
  - Oesophageal disorder [Not Recovered/Not Resolved]
  - Vertigo [Recovering/Resolving]
  - Diabetes mellitus [Unknown]
  - Lymphoma [Not Recovered/Not Resolved]
  - Lung disorder [Not Recovered/Not Resolved]
  - Limb discomfort [Not Recovered/Not Resolved]
  - Pain [Not Recovered/Not Resolved]
  - Influenza [Not Recovered/Not Resolved]
  - Benign neoplasm [Recovered/Resolved]
  - Dyspnoea [Unknown]
  - Glucose tolerance impaired [Not Recovered/Not Resolved]
  - Spinal pain [Unknown]
  - Arthralgia [Not Recovered/Not Resolved]
  - Gait disturbance [Unknown]
  - Chest pain [Unknown]
  - Dizziness [Recovering/Resolving]
  - Muscle spasms [Not Recovered/Not Resolved]
  - Malaise [Recovered/Resolved]
  - Asthenia [Unknown]
  - Fatigue [Unknown]
  - Pain in extremity [Unknown]
  - Application site reaction [Unknown]
  - Weight decreased [Recovered/Resolved]
  - Ear disorder [Recovering/Resolving]
  - Diarrhoea [Recovering/Resolving]
  - Muscular weakness [Unknown]
  - Fall [Unknown]
  - Pain in extremity [Not Recovered/Not Resolved]

NARRATIVE: CASE EVENT DATE: 201101
